FAERS Safety Report 7410950-X (Version None)
Quarter: 2011Q2

REPORT INFORMATION
  Report Type: 
  Country: None (occurrence: None)
  Receive Date: 20110405
  Receipt Date: 20110323
  Transmission Date: 20111010
  Serious: Yes (Hospitalization)
  Sender: FDA-Public Use
  Company Number: 2011MA002930

PATIENT
  Age: 46 Year
  Sex: Female

DRUGS (9)
  1. DIAZEPAM [Suspect]
     Dosage: 2 MG;QD
  2. PROMETHAZINE HCL [Suspect]
     Dosage: 25 MG;QD
  3. OXYCODONE HCL [Suspect]
     Dosage: 5 MG;QD
  4. FLUVOXAMINE MALEATE [Suspect]
     Dosage: 25 MG;QD
  5. FENTANYL-100 [Suspect]
  6. GABAPENTIN [Suspect]
     Indication: ALCOHOLISM
     Dosage: 100 MG;QD
  7. NALTREXONE HYDROCHLORIDE [Suspect]
     Indication: ALCOHOLISM
     Dosage: 50 MG;QD
  8. LORAZEPAM [Suspect]
     Dosage: 1 MG;QD
  9. VENLAFAXINE HCL [Suspect]
     Dosage: 37.5 MG;QD

REACTIONS (3)
  - DRUG DEPENDENCE [None]
  - INSOMNIA [None]
  - DRUG INEFFECTIVE [None]
